FAERS Safety Report 7220274-1 (Version None)
Quarter: 2011Q1

REPORT INFORMATION
  Report Type: 
  Country: None (occurrence: None)
  Receive Date: 20110111
  Receipt Date: 20110110
  Transmission Date: 20110831
  Serious: Yes (Death, Hospitalization)
  Sender: FDA-Public Use
  Company Number: US-JNJFOC-20080102018

PATIENT
  Age: 31 Year
  Sex: Male

DRUGS (2)
  1. PHENOTHIAZINE [Suspect]
     Indication: SUICIDE ATTEMPT
     Route: 048
  2. ASPIRIN [Suspect]
     Indication: SUICIDE ATTEMPT
     Route: 048

REACTIONS (1)
  - MULTIPLE DRUG OVERDOSE INTENTIONAL [None]
